FAERS Safety Report 6255964-0 (Version None)
Quarter: 2009Q3

REPORT INFORMATION
  Report Type: 
  Country: None (occurrence: None)
  Receive Date: 20090706
  Receipt Date: 20090702
  Transmission Date: 20100115
  Serious: Yes (Life-Threatening, Other)
  Sender: FDA-Public Use
  Company Number: FI-BRISTOL-MYERS SQUIBB COMPANY-14687081

PATIENT
  Age: 39 Year
  Sex: Female

DRUGS (10)
  1. ORENCIA [Suspect]
     Indication: RHEUMATOID ARTHRITIS
     Dosage: II INFUSION ON 24APR2009
     Dates: start: 20090301
  2. OXIKLORIN [Suspect]
     Dosage: OXIKLORIN 300
  3. AZAMUN [Suspect]
  4. TREXAN [Concomitant]
     Dosage: INJECTION
  5. CARDACE [Concomitant]
  6. CALCICHEW [Concomitant]
     Dosage: 1 DF- 15X2; CALCICHEW DF3
  7. DIUREX [Concomitant]
     Dosage: DIUREX 1
  8. PREDNISOLONE [Concomitant]
  9. ACETAMINOPHEN [Concomitant]
     Dosage: 1DF-1 TO 3G
  10. ZOLT [Concomitant]

REACTIONS (6)
  - ARTHRALGIA [None]
  - CYST [None]
  - FOLLICULITIS [None]
  - LEUKOPENIA [None]
  - NEUTROPENIA [None]
  - SYNOVITIS [None]
